FAERS Safety Report 4536244-8 (Version None)
Quarter: 2004Q4

REPORT INFORMATION
  Report Type: 
  Country: None (occurrence: None)
  Receive Date: 20041223
  Receipt Date: 20040511
  Transmission Date: 20050328
  Serious: No
  Sender: FDA-Public Use
  Company Number: US-GLAXOSMITHKLINE-A0510334A

PATIENT
  Age: 46 Year
  Sex: Male

DRUGS (1)
  1. FLONASE [Suspect]
     Route: 045

REACTIONS (1)
  - INTRAOCULAR PRESSURE INCREASED [None]
